FAERS Safety Report 7682789 (Version 7)
Quarter: 2012Q4

REPORT INFORMATION
  Report Type: Report from Study
  Country: KR (occurrence: KR)
  Receive Date: 20101124
  Receipt Date: 20120911
  Transmission Date: 20130627
  Serious: Yes (Hospitalization, Other)
  Sender: FDA-Public Use
  Company Number: KR-JNJFOC-20101106316

PATIENT
  Age: 20 Year
  Sex: Female
  Weight: 43.2 kg

DRUGS (3)
  1. PALIPERIDONE PALMITATE [Suspect]
     Indication: SCHIZOPHRENIA
     Route: 030
     Dates: start: 20101111, end: 20101111
  2. GEWORIN [Suspect]
     Indication: PRODUCT USED FOR UNKNOWN INDICATION
     Dates: start: 20101113, end: 20101113
  3. ZIPRASIDONE [Concomitant]
     Indication: SCHIZOPHRENIA
     Route: 048
     Dates: start: 20100908

REACTIONS (3)
  - Suicide attempt [Recovered/Resolved]
  - Schizophrenia [Recovered/Resolved]
  - Liver function test abnormal [Recovered/Resolved]
